FAERS Safety Report 9885082 (Version 1)
Quarter: 2014Q1

REPORT INFORMATION
  Report Type: Spontaneous
  Country: US (occurrence: US)
  Receive Date: 20140210
  Receipt Date: 20140210
  Transmission Date: 20141002
  Serious: No
  Sender: FDA-Public Use
  Company Number: US-BAYER-2014-020178

PATIENT
  Age: 82 Year
  Sex: Female
  Weight: 77 kg

DRUGS (4)
  1. ALEVE CAPLET [Suspect]
     Indication: PAIN
     Dosage: 1 DF, BID
     Route: 048
     Dates: start: 201306
  2. ZOCOR [Concomitant]
  3. FISH OIL [Concomitant]
  4. ESCITALOPRAM [Concomitant]

REACTIONS (1)
  - Incorrect drug administration duration [None]
